FAERS Safety Report 13340988 (Version 3)
Quarter: 2018Q1

REPORT INFORMATION
  Report Type: Report from Study
  Country: US (occurrence: US)
  Receive Date: 20170316
  Receipt Date: 20180220
  Transmission Date: 20180508
  Serious: Yes (Hospitalization, Other)
  Sender: FDA-Public Use
  Company Number: US-ROCHE-1906467

PATIENT
  Age: 33 Year
  Sex: Female
  Weight: 74 kg

DRUGS (11)
  1. TRASTUZUMAB. [Suspect]
     Active Substance: TRASTUZUMAB
     Dosage: MAINTENANCE DOSE?THERAPY WITHHELD DUE TO ABDOMINAL PAIN, NAUSEA AND VOMITING
     Route: 042
  2. PERTUZUMAB. [Suspect]
     Active Substance: PERTUZUMAB
     Dosage: THERAPY RESTARTED
     Route: 042
     Dates: start: 20170307
  3. TRASTUZUMAB. [Suspect]
     Active Substance: TRASTUZUMAB
     Route: 042
     Dates: start: 20170917
  4. OMEPRAZOLE. [Concomitant]
     Active Substance: OMEPRAZOLE
     Route: 065
  5. PERTUZUMAB. [Suspect]
     Active Substance: PERTUZUMAB
     Route: 042
     Dates: start: 20170917
  6. PERTUZUMAB. [Suspect]
     Active Substance: PERTUZUMAB
     Dosage: MAINTENANCE DOSE?THERAPY WITHHELD DUE TO ABDOMINAL PAIN, NAUSEA AND VOMITING
     Route: 042
  7. PERTUZUMAB. [Suspect]
     Active Substance: PERTUZUMAB
     Indication: INFLAMMATORY CARCINOMA OF THE BREAST
     Dosage: LOADING DOSE
     Route: 042
     Dates: start: 20161212
  8. TRASTUZUMAB. [Suspect]
     Active Substance: TRASTUZUMAB
     Indication: INFLAMMATORY CARCINOMA OF THE BREAST
     Dosage: LOADING DOSE
     Route: 042
     Dates: start: 20161212
  9. TRASTUZUMAB. [Suspect]
     Active Substance: TRASTUZUMAB
     Dosage: THERAPY RESTARTED
     Route: 042
     Dates: start: 20170307
  10. PACLITAXEL. [Suspect]
     Active Substance: PACLITAXEL
     Indication: INFLAMMATORY CARCINOMA OF THE BREAST
     Dosage: THERAPY WITHHELD DUE TO ABDOMINAL PAIN, NAUSEA AND VOMITING
     Route: 042
     Dates: start: 20161219
  11. PACLITAXEL. [Suspect]
     Active Substance: PACLITAXEL
     Dosage: THERAPY RESTARTED
     Route: 042
     Dates: start: 20170307, end: 20170403

REACTIONS (5)
  - Vomiting [Unknown]
  - Nausea [Unknown]
  - Abdominal pain [Unknown]
  - Pyrexia [Recovered/Resolved]
  - Ejection fraction decreased [Unknown]

NARRATIVE: CASE EVENT DATE: 20170306
